FAERS Safety Report 11398692 (Version 1)
Quarter: 2015Q3

REPORT INFORMATION
  Report Type: Spontaneous
  Country: SE (occurrence: SE)
  Receive Date: 20150820
  Receipt Date: 20150820
  Transmission Date: 20151125
  Serious: Yes (Other)
  Sender: FDA-Public Use
  Company Number: SE-SA-2015SA116823

PATIENT
  Age: 31 Year
  Sex: Female

DRUGS (3)
  1. SELSUN [Suspect]
     Active Substance: SELENIUM SULFIDE
     Indication: FUNGAL SKIN INFECTION
     Dosage: DOSE: 1 WASH?SHAMPOO SIX TIMES
     Route: 065
     Dates: start: 20150722, end: 20150731
  2. SELSUN [Suspect]
     Active Substance: SELENIUM SULFIDE
     Indication: FUNGAL SKIN INFECTION
     Dosage: DOSE: 1 WASH?SHAMPOO SIX TIMES
     Route: 065
     Dates: start: 20150722, end: 20150731
  3. SELSUN [Suspect]
     Active Substance: SELENIUM SULFIDE
     Indication: TINEA VERSICOLOUR
     Dosage: DOSE: 1 WASH?SHAMPOO SIX TIMES
     Route: 065
     Dates: start: 20150722, end: 20150731

REACTIONS (5)
  - Purulence [Not Recovered/Not Resolved]
  - Skin irritation [Recovering/Resolving]
  - Blister [Not Recovered/Not Resolved]
  - Skin burning sensation [Not Recovered/Not Resolved]
  - Erythema [Recovering/Resolving]

NARRATIVE: CASE EVENT DATE: 201507
